FAERS Safety Report 18408328 (Version 2)
Quarter: 2021Q1

REPORT INFORMATION
  Report Type: Spontaneous
  Country: US (occurrence: US)
  Receive Date: 20201020
  Receipt Date: 20210311
  Transmission Date: 20210419
  Serious: Yes (Hospitalization)
  Sender: FDA-Public Use
  Company Number: US-SEATTLE GENETICS-2020SGN03777

PATIENT
  Age: 67 Year
  Sex: Female

DRUGS (3)
  1. TUKYSA [Suspect]
     Active Substance: TUCATINIB
     Dosage: 150 MG
     Route: 065
  2. TUKYSA [Suspect]
     Active Substance: TUCATINIB
     Indication: BREAST CANCER FEMALE
     Dosage: UNK MG
     Route: 065
  3. CAPECITABINE. [Concomitant]
     Active Substance: CAPECITABINE

REACTIONS (6)
  - Fall [Unknown]
  - Catatonia [Unknown]
  - Brain operation [Unknown]
  - Decreased appetite [Unknown]
  - Erythema [Unknown]
  - Vomiting [Unknown]

NARRATIVE: CASE EVENT DATE: 20201014
